FAERS Safety Report 6774151-0 (Version None)
Quarter: 2010Q2

REPORT INFORMATION
  Report Type: 
  Country: None (occurrence: None)
  Receive Date: 20100617
  Receipt Date: 20100603
  Transmission Date: 20101027
  Serious: Yes (Other)
  Sender: FDA-Public Use
  Company Number: PT-RANBAXY-2010RR-34091

PATIENT
  Age: 29 Year
  Sex: Female

DRUGS (3)
  1. VENLAFAXINE [Suspect]
     Indication: DEPRESSED MOOD
     Dosage: 75 MG, UNK
  2. VENLAFAXINE [Suspect]
     Indication: ANXIETY
  3. SERTRALINE HCL [Suspect]
     Indication: DEPRESSIVE SYMPTOM
     Dosage: 50 MG, UNK

REACTIONS (2)
  - MOVEMENT DISORDER [None]
  - TORTICOLLIS [None]
